FAERS Safety Report 8822694 (Version 3)
Quarter: 2013Q4

REPORT INFORMATION
  Report Type: Report from Study
  Country: BG (occurrence: BG)
  Receive Date: 20121003
  Receipt Date: 20131025
  Transmission Date: 20140711
  Serious: Yes (Life-Threatening, Hospitalization, Disabling)
  Sender: FDA-Public Use
  Company Number: BG-BRISTOL-MYERS SQUIBB COMPANY-16992133

PATIENT
  Age: 44 Year
  Sex: Female

DRUGS (10)
  1. CISPLATIN FOR INJ [Suspect]
     Indication: METASTATIC GASTRIC CANCER
     Dosage: 28MAY-23JUL12-107.1MG?LAST DOSE-20-20AUG12-105.75MG
     Route: 041
     Dates: start: 20120528, end: 20120820
  2. S-1 [Suspect]
     Indication: METASTATIC GASTRIC CANCER
     Dosage: CAPSULES.?28MAY12-12AUG12-35MG?5SEP12-9SEP12-27.5MG
     Route: 048
     Dates: start: 20120528, end: 20120909
  3. EPOETIN ALFA [Concomitant]
     Indication: ANAEMIA
     Dates: start: 20120813, end: 20120823
  4. ZOFRAN [Concomitant]
     Indication: PREMEDICATION
     Dates: start: 20120820, end: 20120820
  5. DEGAN [Concomitant]
     Indication: PREMEDICATION
     Dates: start: 20120820, end: 20120820
  6. DEXAMETHASONE [Concomitant]
     Indication: PREMEDICATION
     Dates: start: 20120820, end: 20120820
  7. ARANESP [Concomitant]
     Indication: ANAEMIA
     Dates: start: 20120903, end: 20120903
  8. URBASON [Concomitant]
     Indication: THROMBOCYTOPENIA
     Dates: start: 20120903, end: 20120917
  9. QUAMATEL [Concomitant]
     Indication: PROPHYLAXIS
     Dates: start: 20120903, end: 20120917
  10. FILGRASTIM [Concomitant]
     Indication: LEUKOPENIA
     Dates: start: 20120903, end: 20120903

REACTIONS (1)
  - Decreased appetite [Not Recovered/Not Resolved]
